FAERS Safety Report 7245083-9 (Version None)
Quarter: 2011Q1

REPORT INFORMATION
  Report Type: 
  Country: None (occurrence: None)
  Receive Date: 20110126
  Receipt Date: 20110120
  Transmission Date: 20110831
  Serious: Yes (Death)
  Sender: FDA-Public Use
  Company Number: JP-PFIZER INC-2011013494

PATIENT
  Age: 90 Year
  Sex: Female

DRUGS (8)
  1. VOLTAREN [Concomitant]
     Dosage: UNK
     Route: 054
  2. TERIPARATIDE [Suspect]
     Indication: OSTEOPOROSIS
     Dosage: 20 UG, UNK
     Route: 058
     Dates: start: 20101120, end: 20110114
  3. LYRICA [Suspect]
     Indication: NEURALGIA
     Dosage: 50 MG, DAILY
     Route: 048
     Dates: start: 20101124, end: 20110114
  4. OMEPRAL [Concomitant]
     Route: 048
  5. BUP-4 [Concomitant]
     Indication: NEUROGENIC BLADDER
     Dosage: 10 MG, DAILY
     Route: 048
  6. PLETAL [Concomitant]
     Dosage: 200 MG, DAILY
     Route: 048
  7. MAGNESIUM OXIDE [Concomitant]
     Dosage: 1 G, DAILY
     Route: 048
  8. MUCOSTA [Concomitant]
     Dosage: 300 MG, DAILY

REACTIONS (1)
  - CEREBRAL ARTERY EMBOLISM [None]
